FAERS Safety Report 4284737-3 (Version None)
Quarter: 2004Q1

REPORT INFORMATION
  Report Type: 
  Country: None (occurrence: None)
  Receive Date: 20040202
  Receipt Date: 20040113
  Transmission Date: 20041129
  Serious: No
  Sender: FDA-Public Use
  Company Number: 7253

PATIENT
  Age: 59 Year
  Sex: Female

DRUGS (3)
  1. METHOTREXATE [Suspect]
     Indication: RHEUMATOID ARTHRITIS
     Dosage: 25 MG WEEKLY/15 MG WEEKLY
     Route: 042
     Dates: start: 19910101, end: 19930101
  2. METHOTREXATE [Suspect]
     Indication: RHEUMATOID ARTHRITIS
     Dosage: 25 MG WEEKLY/15 MG WEEKLY
     Route: 042
     Dates: start: 19940101
  3. CALCIUM FOLINATE [Concomitant]

REACTIONS (3)
  - CHRONIC LYMPHOCYTIC LEUKAEMIA [None]
  - DRUG INTOLERANCE [None]
  - FEELING ABNORMAL [None]
